FAERS Safety Report 5227984-6 (Version None)
Quarter: 2007Q1

REPORT INFORMATION
  Report Type: 
  Country: None (occurrence: None)
  Receive Date: 20061201
  Receipt Date: 20060303
  Transmission Date: 20070707
  Serious: Yes (Hospitalization)
  Sender: FDA-Public Use
  Company Number: 2006-139389-NL

PATIENT
  Age: 26 Year
  Sex: Female
  Weight: 140.6 kg

DRUGS (3)
  1. NUVARING [Suspect]
     Indication: CONTRACEPTION
     Dosage: VAGINAL,  3 WEEKS IN, 1 WEEK OUT
     Route: 067
     Dates: start: 20020101
  2. NUVARING [Suspect]
     Indication: CONTRACEPTION
     Dosage: VAGINAL,  3 WEEKS IN, 1 WEEK OUT
     Route: 067
     Dates: start: 20040101, end: 20040801
  3. ZOLOFT [Concomitant]

REACTIONS (2)
  - DEEP VEIN THROMBOSIS [None]
  - PULMONARY EMBOLISM [None]
